FAERS Safety Report 20722351 (Version 1)
Quarter: 2022Q2

REPORT INFORMATION
  Report Type: Spontaneous
  Country: US (occurrence: US)
  Receive Date: 20220418
  Receipt Date: 20220418
  Transmission Date: 20220721
  Serious: No
  Sender: FDA-Public Use
  Company Number: US-GILEAD-2022-0577907

PATIENT
  Sex: Male

DRUGS (7)
  1. SOFOSBUVIR\VELPATASVIR [Suspect]
     Active Substance: SOFOSBUVIR\VELPATASVIR
     Indication: Chronic hepatitis C
     Dosage: 1 DOSAGE FORM, QD
     Route: 048
     Dates: start: 20220315
  2. XARELTO [Concomitant]
     Active Substance: RIVAROXABAN
  3. LISINOPRIL [Concomitant]
     Active Substance: LISINOPRIL
  4. CARVEDILOL [Concomitant]
     Active Substance: CARVEDILOL
  5. TORSEMIDE [Concomitant]
     Active Substance: TORSEMIDE
  6. COLCHICINE [Concomitant]
     Active Substance: COLCHICINE
  7. GLUCOSAMINE SULFATE [Concomitant]
     Active Substance: GLUCOSAMINE SULFATE

REACTIONS (1)
  - Joint swelling [Unknown]
